FAERS Safety Report 9411170 (Version 1)
Quarter: 2013Q3

REPORT INFORMATION
  Report Type: Report from Study
  Country: AR (occurrence: AR)
  Receive Date: 20130721
  Receipt Date: 20130721
  Transmission Date: 20140515
  Serious: Yes (Hospitalization, Other)
  Sender: FDA-Public Use
  Company Number: PHHY2013AR077059

PATIENT
  Age: 72 Year
  Sex: Male

DRUGS (1)
  1. RASILEZ D [Suspect]
     Indication: HYPERTENSION
     Dosage: 1 DF, DAILY
     Route: 048
     Dates: end: 20130119

REACTIONS (4)
  - Cholelithiasis [Recovered/Resolved]
  - Blood creatinine increased [Recovered/Resolved]
  - Gallbladder pain [Recovered/Resolved]
  - Iodine allergy [Unknown]
